FAERS Safety Report 9322506 (Version 1)
Quarter: 2013Q2

REPORT INFORMATION
  Report Type: Spontaneous
  Country: NL (occurrence: NL)
  Receive Date: 20130531
  Receipt Date: 20130531
  Transmission Date: 20140414
  Serious: Yes (Other)
  Sender: FDA-Public Use
  Company Number: NL-PFIZER INC-2013165296

PATIENT
  Age: 44 Year
  Sex: Female

DRUGS (6)
  1. CHAMPIX [Suspect]
     Indication: SMOKING CESSATION THERAPY
     Dosage: 1 DF, 2X/DAY
     Dates: start: 20130501, end: 20130517
  2. TRIGYNON [Concomitant]
     Dosage: 1 DF, 1X/DAY
  3. PERINDOPRIL [Concomitant]
     Dosage: 1 DF, 1X/DAY
     Dates: start: 20130415
  4. DOVOBET [Concomitant]
     Dosage: 1 DF, 1X/DAY
     Dates: start: 20130412
  5. CARBASALATE CALCIUM [Concomitant]
     Dosage: 100 MG, 1X/DAY
  6. SIMVASTATIN [Concomitant]
     Dosage: 40 MG, 1X/DAY

REACTIONS (2)
  - Oral mucosal blistering [Recovering/Resolving]
  - Psoriasis [Recovering/Resolving]
